FAERS Safety Report 5087012-2 (Version None)
Quarter: 2006Q3

REPORT INFORMATION
  Report Type: 
  Country: None (occurrence: None)
  Receive Date: 20060818
  Receipt Date: 20060807
  Transmission Date: 20061208
  Serious: Yes (Life-Threatening, Other)
  Sender: FDA-Public Use
  Company Number: AND_0380_2006

PATIENT
  Sex: Female

DRUGS (1)
  1. FORTAMET [Suspect]
     Dosage: 1000 MG ONCE PO
     Route: 048
     Dates: start: 20060601, end: 20060601

REACTIONS (4)
  - DYSPNOEA [None]
  - FOREIGN BODY TRAUMA [None]
  - LUNG DISORDER [None]
  - OBSTRUCTION [None]
